FAERS Safety Report 8888608 (Version 2)
Quarter: 2012Q4

REPORT INFORMATION
  Report Type: 
  Country: GB (occurrence: GB)
  Receive Date: 20121106
  Receipt Date: 20121120
  Transmission Date: 20130627
  Serious: Yes (Disabling, Other)
  Sender: FDA-Public Use
  Company Number: GB-PFIZER INC-2012273361

PATIENT
  Age: 83 Year
  Sex: Female

DRUGS (5)
  1. ATORVASTATIN CALCIUM [Suspect]
     Dosage: 10 mg, UNK
     Dates: end: 201204
  2. ATORVASTATIN CALCIUM [Suspect]
     Dosage: 80 mg, once per day
     Route: 048
     Dates: start: 201204, end: 201209
  3. ISOSORBIDE [Concomitant]
     Dosage: UNK
  4. BISOPROLOL FUMARATE [Concomitant]
     Dosage: UNK
  5. BENDROFLUMETHIAZIDE [Concomitant]
     Dosage: UNK

REACTIONS (8)
  - Hypertrophic cardiomyopathy [Not Recovered/Not Resolved]
  - Oedema [Unknown]
  - Dizziness [Unknown]
  - Decreased appetite [Unknown]
  - Dyspnoea exertional [Unknown]
  - Balance disorder [Unknown]
  - Cardiac failure [Unknown]
  - Myopathy [Unknown]
